FAERS Safety Report 5691812-5 (Version None)
Quarter: 2008Q2

REPORT INFORMATION
  Report Type: 
  Country: None (occurrence: None)
  Receive Date: 20080402
  Receipt Date: 20080325
  Transmission Date: 20081010
  Serious: Yes (Other)
  Sender: FDA-Public Use
  Company Number: JP-BRISTOL-MYERS SQUIBB COMPANY-14132617

PATIENT

DRUGS (3)
  1. GATIFLO TABS [Suspect]
     Route: 048
  2. MUCODYNE [Concomitant]
  3. MEFENAMIC ACID [Concomitant]

REACTIONS (1)
  - ANAPHYLACTOID REACTION [None]
